FAERS Safety Report 18675508 (Version 9)
Quarter: 2021Q2

REPORT INFORMATION
  Report Type: Spontaneous
  Country: US (occurrence: US)
  Receive Date: 20201229
  Receipt Date: 20210622
  Transmission Date: 20210717
  Serious: Yes (Other)
  Sender: FDA-Public Use
  Company Number: US-GLAXOSMITHKLINE-US2020AMR253529

PATIENT
  Sex: Female

DRUGS (7)
  1. ZEJULA [Suspect]
     Active Substance: NIRAPARIB
     Indication: OVARIAN CANCER
     Dosage: 200 MG, QD
     Dates: start: 20201211
  2. ZEJULA [Suspect]
     Active Substance: NIRAPARIB
     Dosage: UNK UNK, QOD ( (200MG ALTERNATING WITH 100MG EVERY OTHER DAY))
  3. ZEJULA [Suspect]
     Active Substance: NIRAPARIB
     Dosage: UNK (100MG ALTERNATING WITH 200MG DAILY)
  4. ZEJULA [Suspect]
     Active Substance: NIRAPARIB
     Dosage: 100 MG, QD(100MG QD ALT WITH 200MG QOD)
  5. ZEJULA [Suspect]
     Active Substance: NIRAPARIB
     Dosage: 200MG ALTERNATING WITH 100MG EVERY OTHER DAY
  6. ZEJULA [Suspect]
     Active Substance: NIRAPARIB
     Dosage: 200 MG, QD
     Route: 048
  7. ZEJULA [Suspect]
     Active Substance: NIRAPARIB
     Dosage: 200 MG, QD

REACTIONS (14)
  - Platelet count decreased [Not Recovered/Not Resolved]
  - Cardiac hypertrophy [Not Recovered/Not Resolved]
  - Dyspnoea [Not Recovered/Not Resolved]
  - Haematocrit decreased [Unknown]
  - COVID-19 [Unknown]
  - Malignant neoplasm progression [Unknown]
  - Initial insomnia [Not Recovered/Not Resolved]
  - Nodule [Not Recovered/Not Resolved]
  - Incorrect dose administered [Unknown]
  - Pneumonia [Unknown]
  - Stomatitis [Recovered/Resolved]
  - Palpitations [Unknown]
  - Red blood cell count decreased [Not Recovered/Not Resolved]
  - Haemoglobin decreased [Not Recovered/Not Resolved]
